FAERS Safety Report 9460342 (Version 1)
Quarter: 2013Q3

REPORT INFORMATION
  Report Type: Spontaneous
  Country: GB (occurrence: GB)
  Receive Date: 20130815
  Receipt Date: 20130815
  Transmission Date: 20140515
  Serious: Yes (Hospitalization)
  Sender: FDA-Public Use
  Company Number: GB-WATSON-2013-14699

PATIENT
  Age: 56 Year
  Sex: Male

DRUGS (2)
  1. PRAMIPEXOLE DIHYDROCHLORIDE (UNKNOWN) [Suspect]
     Indication: PARKINSON^S DISEASE
     Dosage: UNK
     Route: 048
  2. RASAGILINE [Concomitant]
     Indication: PRODUCT USED FOR UNKNOWN INDICATION
     Dosage: UNK, UNKNOWN

REACTIONS (4)
  - Impulse-control disorder [Unknown]
  - Impulsive behaviour [Unknown]
  - Personality change [Unknown]
  - Obsessive-compulsive personality disorder [Unknown]
